FAERS Safety Report 7390338-0 (Version None)
Quarter: 2011Q2

REPORT INFORMATION
  Report Type: 
  Country: None (occurrence: None)
  Receive Date: 20110401
  Receipt Date: 20110321
  Transmission Date: 20111010
  Serious: Yes (Other)
  Sender: FDA-Public Use
  Company Number: IT-GENENTECH-315842

PATIENT
  Age: 70 Year
  Sex: Male

DRUGS (1)
  1. RITUXIMAB [Suspect]
     Indication: PSORIASIS
     Dosage: 375 MG/M2, 1/WEEK
     Route: 042

REACTIONS (1)
  - PSORIASIS [None]
